FAERS Safety Report 6471763-9 (Version None)
Quarter: 2009Q4

REPORT INFORMATION
  Report Type: 
  Country: None (occurrence: None)
  Receive Date: 20091203
  Receipt Date: 20080229
  Transmission Date: 20100525
  Serious: Yes (Hospitalization)
  Sender: FDA-Public Use
  Company Number: TR-ELI_LILLY_AND_COMPANY-TR200803002746

PATIENT
  Age: 62 Year
  Sex: Female
  Weight: 75 kg

DRUGS (10)
  1. HUMALOG [Suspect]
     Indication: TYPE 2 DIABETES MELLITUS
     Dosage: 20 IU, EACH MORNING
     Route: 058
     Dates: start: 20080101
  2. HUMALOG [Suspect]
     Dosage: 18 IU, EACH NOON
     Route: 058
     Dates: start: 20080101
  3. HUMALOG [Suspect]
     Dosage: 18 IU, EACH EVENING
     Route: 058
     Dates: start: 20080101
  4. LANTUS [Concomitant]
     Indication: TYPE 2 DIABETES MELLITUS
     Dosage: 30 IU, EACH EVENING
     Route: 058
     Dates: start: 20080101
  5. DIGOXIN [Concomitant]
     Indication: CARDIAC FAILURE CONGESTIVE
     Dosage: UNK, DAILY (1/D)
     Route: 048
     Dates: start: 20010101
  6. DILATREND [Concomitant]
     Indication: CARDIAC FAILURE CONGESTIVE
     Dosage: UNK, DAILY (1/D)
     Route: 048
     Dates: start: 20010101
  7. PROPYCIL [Concomitant]
     Indication: THYROID DISORDER
     Dosage: UNK, 2/D
     Route: 048
     Dates: start: 20020101
  8. KARVEA [Concomitant]
     Indication: HYPERTENSION
     Dosage: UNK, 3/D
     Route: 048
     Dates: start: 20020101
  9. DESAL [Concomitant]
     Indication: POLYURIA
     Dosage: UNK, 3/D
     Route: 048
     Dates: start: 20030101
  10. ALDACTONE [Concomitant]
     Indication: POLYURIA
     Dosage: UNK, 3/D
     Route: 048
     Dates: start: 20030101

REACTIONS (1)
  - OEDEMA [None]
